FAERS Safety Report 8161315-7 (Version None)
Quarter: 2012Q1

REPORT INFORMATION
  Report Type: 
  Country: None (occurrence: None)
  Receive Date: 20120224
  Receipt Date: 20120217
  Transmission Date: 20120608
  Serious: Yes (Hospitalization)
  Sender: FDA-Public Use
  Company Number: IE-JNJFOC-20110905351

PATIENT
  Sex: Female

DRUGS (11)
  1. SIMPONI [Suspect]
     Indication: RHEUMATOID ARTHRITIS
     Route: 058
     Dates: start: 20110812
  2. NEBIVOLOL HCL [Concomitant]
  3. RAMIPRIL [Concomitant]
  4. LIDOCAINE [Concomitant]
  5. HYDROXYCHLOROQUINE SULFATE [Concomitant]
  6. CALCIUM CARBONATE [Concomitant]
  7. TRAMADOL SR [Concomitant]
  8. ACETAMINOPHEN W/ CODEINE [Concomitant]
  9. NORGESTIMATE AND ETHINYL ESTRADIOL [Concomitant]
  10. PANTOPRAZOLE [Concomitant]
  11. EZETIMIBE [Concomitant]

REACTIONS (4)
  - INJECTION SITE REACTION [None]
  - PARAESTHESIA [None]
  - HYPERTENSION [None]
  - HEADACHE [None]
